FAERS Safety Report 7395930-5 (Version None)
Quarter: 2011Q2

REPORT INFORMATION
  Report Type: 
  Country: None (occurrence: None)
  Receive Date: 20110406
  Receipt Date: 20110328
  Transmission Date: 20111010
  Serious: Yes (Hospitalization)
  Sender: FDA-Public Use
  Company Number: US-BIOGENIDEC-2011BI010504

PATIENT
  Age: 38 Year
  Sex: Female

DRUGS (1)
  1. AVONEX [Suspect]
     Indication: MULTIPLE SCLEROSIS
     Route: 030
     Dates: start: 20000315, end: 20020313

REACTIONS (3)
  - DELIRIUM [None]
  - OEDEMA PERIPHERAL [None]
  - CELLULITIS [None]
